FAERS Safety Report 7533269-5 (Version None)
Quarter: 2011Q2

REPORT INFORMATION
  Report Type: 
  Country: None (occurrence: None)
  Receive Date: 20110608
  Receipt Date: 20110523
  Transmission Date: 20111010
  Serious: Yes (Other)
  Sender: FDA-Public Use
  Company Number: US-BAYER-2010-001598

PATIENT
  Age: 21 Year
  Sex: Female

DRUGS (7)
  1. TAMIFLU [Concomitant]
  2. YAZ [Suspect]
     Indication: PREMENSTRUAL SYNDROME
     Dosage: UNK
     Dates: start: 20070101, end: 20081001
  3. HYDROCODONE W/ACETYLSALICYLIC ACID [Concomitant]
  4. BUSPIRONE HCL [Concomitant]
     Dosage: 15 MG, BID
  5. INDOMETHACIN [Concomitant]
  6. AZITHROMYCIN [Concomitant]
  7. BUPROPION HCL [Concomitant]
     Dosage: 100 MG, BID

REACTIONS (3)
  - CHOLELITHIASIS [None]
  - CHOLECYSTITIS [None]
  - GALLBLADDER DISORDER [None]
